FAERS Safety Report 5530761-X (Version None)
Quarter: 2007Q4

REPORT INFORMATION
  Report Type: 
  Country: None (occurrence: None)
  Receive Date: 20071130
  Receipt Date: 20071119
  Transmission Date: 20080405
  Serious: Yes (Hospitalization)
  Sender: FDA-Public Use
  Company Number: JP-ELI_LILLY_AND_COMPANY-JP200711000668

PATIENT
  Sex: Male
  Weight: 61 kg

DRUGS (6)
  1. GEMZAR [Suspect]
     Indication: BILIARY CANCER METASTATIC
     Dosage: 1700 MG, OTHER
     Route: 042
     Dates: start: 20070731, end: 20071009
  2. MAGLAX [Concomitant]
     Dosage: 2 D/F, DAILY (1/D)
     Route: 048
     Dates: start: 20060309, end: 20061012
  3. LENDORMIN [Concomitant]
     Dosage: 1 D/F, DAILY (1/D)
     Route: 048
     Dates: start: 20060309, end: 20070925
  4. GASTER [Concomitant]
     Dosage: 20 MG, DAILY (1/D)
     Route: 048
     Dates: start: 20060824, end: 20070925
  5. DECADRON [Concomitant]
     Dosage: 16 MG, OTHER
     Route: 042
     Dates: start: 20070731, end: 20071009
  6. KYTRIL [Concomitant]
     Dosage: 1 D/F, DAILY (1/D)
     Route: 042
     Dates: start: 20070731, end: 20071009

REACTIONS (6)
  - ANOREXIA [None]
  - CHOLANGITIS [None]
  - INTERSTITIAL LUNG DISEASE [None]
  - PLEURAL EFFUSION [None]
  - PYREXIA [None]
  - URINE OUTPUT DECREASED [None]
